FAERS Safety Report 5834682-4 (Version None)
Quarter: 2008Q3

REPORT INFORMATION
  Report Type: 
  Country: None (occurrence: None)
  Receive Date: 20080805
  Receipt Date: 20080729
  Transmission Date: 20090109
  Serious: Yes (Hospitalization)
  Sender: FDA-Public Use
  Company Number: AU-MERCK-0807AUS00290

PATIENT
  Age: 79 Year
  Sex: Male

DRUGS (3)
  1. FOSAMAX [Suspect]
     Route: 048
     Dates: start: 20050101
  2. [THERAPY UNSPECIFIED] [Concomitant]
     Indication: PARKINSON'S DISEASE
     Route: 065
  3. [THERAPY UNSPECIFIED] [Concomitant]
     Indication: BLOOD PRESSURE ABNORMAL
     Route: 065

REACTIONS (2)
  - FALL [None]
  - SPINAL FRACTURE [None]
